FAERS Safety Report 5196822-2 (Version None)
Quarter: 2007Q1

REPORT INFORMATION
  Report Type: 
  Country: None (occurrence: None)
  Receive Date: 20070103
  Receipt Date: 20061222
  Transmission Date: 20070707
  Serious: Yes (Death)
  Sender: FDA-Public Use
  Company Number: LB-BRISTOL-MYERS SQUIBB COMPANY-13624218

PATIENT
  Age: 69 Year
  Sex: Male
  Weight: 55 kg

DRUGS (2)
  1. COAPROVEL [Suspect]
     Indication: HYPERTENSION
     Route: 048
     Dates: start: 20060619
  2. GLUCOPHAGE [Suspect]
     Indication: DIABETES MELLITUS
     Route: 048
     Dates: start: 20050101

REACTIONS (1)
  - GASTRIC CANCER [None]
